FAERS Safety Report 8836681 (Version 1)
Quarter: 2012Q4

REPORT INFORMATION
  Report Type: Spontaneous
  Country: DE (occurrence: None)
  Receive Date: 20121009
  Receipt Date: 20121009
  Transmission Date: 20130627
  Serious: Yes (Death, Other)
  Sender: FDA-Public Use
  Company Number: FK201202971

PATIENT
  Age: 27 Year
  Sex: Male

DRUGS (1)
  1. CISPLATIN [Suspect]
     Indication: TONSIL CANCER

REACTIONS (12)
  - Haematotoxicity [None]
  - Diarrhoea [None]
  - Oral candidiasis [None]
  - Pancytopenia [None]
  - Pleural effusion [None]
  - Pneumonia [None]
  - Acute respiratory distress syndrome [None]
  - Malignant neoplasm progression [None]
  - Tonsil cancer [None]
  - Emphysema [None]
  - Jugular vein thrombosis [None]
  - Drug ineffective [None]
